FAERS Safety Report 6340152-X (Version None)
Quarter: 2009Q3

REPORT INFORMATION
  Report Type: 
  Country: None (occurrence: None)
  Receive Date: 20090903
  Receipt Date: 20090826
  Transmission Date: 20100115
  Serious: Yes (Death, Hospitalization, Other)
  Sender: FDA-Public Use
  Company Number: US-AMGEN-QUU362248

PATIENT
  Sex: Female

DRUGS (13)
  1. ENBREL [Suspect]
     Indication: PSORIASIS
     Route: 064
  2. LAMICTAL [Concomitant]
     Route: 064
     Dates: start: 20050101
  3. NUVARING [Concomitant]
  4. TRILEPTAL [Concomitant]
     Route: 064
  5. TIZANIDINE HCL [Concomitant]
     Route: 064
  6. CLONOPIN [Concomitant]
     Route: 064
  7. IBUPROFEN [Concomitant]
     Route: 064
  8. TYLENOL (CAPLET) [Concomitant]
     Route: 064
  9. AMBIEN [Concomitant]
     Route: 064
  10. LORATADINE [Concomitant]
     Route: 064
  11. PERCOCET [Concomitant]
     Route: 064
  12. FAMCICLOVIR [Concomitant]
     Route: 064
  13. UNSPECIFIED STEROIDS [Concomitant]
     Route: 064

REACTIONS (2)
  - CLEFT LIP [None]
  - INTRA-UTERINE DEATH [None]
